FAERS Safety Report 15623352 (Version 3)
Quarter: 2021Q3

REPORT INFORMATION
  Report Type: Report from Study
  Country: US (occurrence: US)
  Receive Date: 20181115
  Receipt Date: 20210716
  Transmission Date: 20211014
  Serious: Yes (Hospitalization, Other)
  Sender: FDA-Public Use
  Company Number: US-TAKEDA-2018TUS014934

PATIENT
  Sex: Male
  Weight: 63.2 kg

DRUGS (2)
  1. PONATINIB [Suspect]
     Active Substance: PONATINIB
     Dosage: 15 MILLIGRAM, QOD
     Route: 065
     Dates: start: 20180309
  2. PONATINIB [Suspect]
     Active Substance: PONATINIB
     Indication: ACUTE LYMPHOCYTIC LEUKAEMIA
     Dosage: 15 MILLIGRAM, QD
     Route: 048
     Dates: start: 20180309

REACTIONS (6)
  - Pancreatitis acute [Unknown]
  - Pancreatitis [Unknown]
  - Diabetes mellitus [Unknown]
  - Amylase increased [Recovered/Resolved]
  - Neoplasm progression [Unknown]
  - Delirium [Unknown]
